FAERS Safety Report 9689007 (Version 1)
Quarter: 2013Q4

REPORT INFORMATION
  Report Type: Spontaneous
  Country: US (occurrence: US)
  Receive Date: 20131114
  Receipt Date: 20131114
  Transmission Date: 20140711
  Serious: Yes (Other)
  Sender: FDA-Public Use
  Company Number: US-PFIZER INC-2013321419

PATIENT
  Sex: Male

DRUGS (1)
  1. CHANTIX [Suspect]
     Dosage: UNK

REACTIONS (9)
  - Myocardial infarction [Unknown]
  - Coronary artery disease [Unknown]
  - Arterial disorder [Unknown]
  - Arterial injury [Unknown]
  - Stent malfunction [Unknown]
  - Pain in extremity [Unknown]
  - Joint swelling [Unknown]
  - Gait disturbance [Unknown]
  - Nightmare [Unknown]
